FAERS Safety Report 7477183-2 (Version None)
Quarter: 2011Q2

REPORT INFORMATION
  Report Type: 
  Country: None (occurrence: None)
  Receive Date: 20110512
  Receipt Date: 20110228
  Transmission Date: 20111010
  Serious: No
  Sender: FDA-Public Use
  Company Number: US-NOVEN-11US001888

PATIENT
  Sex: Male
  Weight: 18.141 kg

DRUGS (8)
  1. CLONIDINE [Concomitant]
     Indication: INSOMNIA
     Dosage: 0.1 MG, QD
     Route: 048
     Dates: start: 20110218
  2. DEPAKOTE [Concomitant]
     Indication: AFFECTIVE DISORDER
  3. DAYTRANA [Suspect]
     Indication: ATTENTION DEFICIT/HYPERACTIVITY DISORDER
     Dosage: 10 MG, QD
     Route: 062
     Dates: start: 20110228
  4. NASONEX [Concomitant]
     Indication: HYPERSENSITIVITY
     Dosage: 1 SQUIRT EACH NOSTRIL PER DAY
     Route: 055
     Dates: start: 20080101
  5. SINGULAIR [Concomitant]
     Indication: HYPERSENSITIVITY
     Dosage: 4 MG, QD
     Route: 048
     Dates: start: 20101031
  6. DEPAKOTE [Concomitant]
     Indication: ATTENTION DEFICIT/HYPERACTIVITY DISORDER
  7. DEPAKOTE [Concomitant]
     Indication: BIPOLAR DISORDER
     Dosage: 125 MG, 2 TABS QD
     Route: 048
     Dates: start: 20101216
  8. FLOVENT [Concomitant]
     Indication: ASTHMA
     Dosage: 4 PUFFS PER DAY
     Route: 055
     Dates: start: 20090101

REACTIONS (6)
  - DRUG ADMINISTERED AT INAPPROPRIATE SITE [None]
  - DISTURBANCE IN SOCIAL BEHAVIOUR [None]
  - DRUG PRESCRIBING ERROR [None]
  - INCORRECT DRUG ADMINISTRATION DURATION [None]
  - DRUG INEFFECTIVE [None]
  - PRODUCT QUALITY ISSUE [None]
